FAERS Safety Report 8464062-7 (Version None)
Quarter: 2012Q2

REPORT INFORMATION
  Report Type: 
  Country: None (occurrence: None)
  Receive Date: 20120625
  Receipt Date: 20120619
  Transmission Date: 20120825
  Serious: Yes (Other)
  Sender: FDA-Public Use
  Company Number: US-ROCHE-1055297

PATIENT
  Sex: Female
  Weight: 57.658 kg

DRUGS (7)
  1. ZOMETA [Concomitant]
     Indication: PRODUCT USED FOR UNKNOWN INDICATION
     Route: 042
  2. MIRANAX [Concomitant]
     Indication: CONSTIPATION
     Route: 048
  3. MORPHINE [Concomitant]
     Indication: PAIN
     Route: 048
  4. XELODA [Suspect]
     Indication: BREAST CANCER METASTATIC
     Route: 048
     Dates: start: 20120221
  5. OXYCONTIN [Concomitant]
     Indication: PAIN
     Route: 048
  6. CORTISONE ACETATE [Concomitant]
     Indication: RASH
     Route: 061
  7. IMODIUM [Concomitant]
     Indication: DIARRHOEA
     Route: 048

REACTIONS (9)
  - CONSTIPATION [None]
  - DIARRHOEA [None]
  - FATIGUE [None]
  - BLISTER [None]
  - DECREASED APPETITE [None]
  - SKIN CANCER [None]
  - ABDOMINAL PAIN UPPER [None]
  - OEDEMA PERIPHERAL [None]
  - DERMATITIS ALLERGIC [None]
